FAERS Safety Report 13232667 (Version 3)
Quarter: 2018Q2

REPORT INFORMATION
  Report Type: Spontaneous
  Country: TR (occurrence: TR)
  Receive Date: 20170214
  Receipt Date: 20180605
  Transmission Date: 20180711
  Serious: Yes (Life-Threatening, Hospitalization, Other)
  Sender: FDA-Public Use
  Company Number: TR-BAYER-2017-027440

PATIENT
  Age: 20 Year
  Sex: Female

DRUGS (1)
  1. CIPROFLOXACIN. [Suspect]
     Active Substance: CIPROFLOXACIN
     Indication: RHINORRHOEA
     Dosage: UNK
     Route: 048

REACTIONS (9)
  - Hepatic enzyme increased [Recovered/Resolved]
  - Amylase increased [Recovered/Resolved]
  - Sinus tachycardia [Recovered/Resolved]
  - Proteinuria [Recovered/Resolved]
  - Ketonuria [Recovered/Resolved]
  - Platelet count decreased [Recovered/Resolved]
  - Drug reaction with eosinophilia and systemic symptoms [Recovered/Resolved with Sequelae]
  - Toxic epidermal necrolysis [Recovered/Resolved with Sequelae]
  - Sepsis [Recovered/Resolved]
